FAERS Safety Report 22062389 (Version 3)
Quarter: 2023Q2

REPORT INFORMATION
  Report Type: Spontaneous
  Country: US (occurrence: None)
  Receive Date: 20230305
  Receipt Date: 20230413
  Transmission Date: 20230721
  Serious: No
  Sender: FDA-Public Use
  Company Number: 2023A036171

PATIENT
  Sex: Male
  Weight: 117.5 kg

DRUGS (1)
  1. BYDUREON BCISE [Suspect]
     Active Substance: EXENATIDE
     Indication: Type 2 diabetes mellitus
     Dosage: 2MG/ML ONCE A WEEK
     Route: 058
     Dates: start: 20191101

REACTIONS (3)
  - Injection site mass [Unknown]
  - Device use issue [Unknown]
  - Device leakage [Unknown]
